FAERS Safety Report 5076023-9 (Version None)
Quarter: 2006Q3

REPORT INFORMATION
  Report Type: 
  Country: None (occurrence: None)
  Receive Date: 20060808
  Receipt Date: 20060808
  Transmission Date: 20061208
  Serious: Yes (Life-Threatening, Hospitalization, Other)
  Sender: FDA-Public Use
  Company Number: None

PATIENT
  Sex: Female
  Weight: 45.8133 kg

DRUGS (5)
  1. ERBITUX [Suspect]
     Indication: BRAIN CANCER METASTATIC
     Dosage: 365 MG Q WEEK IV
     Route: 042
     Dates: start: 20060706
  2. ERBITUX [Suspect]
     Indication: BRAIN CANCER METASTATIC
     Dosage: 365 MG Q WEEK IV
     Route: 042
     Dates: start: 20060713
  3. ERBITUX [Suspect]
     Indication: BRAIN CANCER METASTATIC
     Dosage: 365 MG Q WEEK IV
     Route: 042
     Dates: start: 20060720
  4. CARBOPLATIN [Suspect]
     Indication: BRAIN CANCER METASTATIC
     Dosage: 148 MG Q WEEK IV
     Route: 042
     Dates: start: 20060706
  5. CARBOPLATIN [Suspect]
     Indication: BRAIN CANCER METASTATIC
     Dosage: 148 MG Q WEEK IV
     Route: 042
     Dates: start: 20060713

REACTIONS (5)
  - DYSPNOEA [None]
  - FATIGUE [None]
  - PAIN [None]
  - VENOUS THROMBOSIS [None]
  - WHEEZING [None]
